FAERS Safety Report 7537092-7 (Version None)
Quarter: 2011Q2

REPORT INFORMATION
  Report Type: 
  Country: None (occurrence: None)
  Receive Date: 20110609
  Receipt Date: 20110531
  Transmission Date: 20111010
  Serious: Yes (Other)
  Sender: FDA-Public Use
  Company Number: PHHY2011FR26480

PATIENT
  Sex: Female
  Weight: 58 kg

DRUGS (4)
  1. AZILECT [Concomitant]
     Indication: PARKINSON'S DISEASE
     Dosage: 1 MG, QD
     Dates: start: 20100401
  2. ARIMIDEX [Concomitant]
     Indication: BREAST CANCER
     Dosage: 1 MG, QD
     Dates: start: 20070101
  3. VITAMIN K TAB [Concomitant]
     Dosage: UNK
  4. STALEVO 100 [Suspect]
     Indication: PARKINSON'S DISEASE
     Dosage: 200/150/37.5 MG  TID
     Dates: start: 20080701

REACTIONS (3)
  - TOXIC SKIN ERUPTION [None]
  - ECZEMA [None]
  - RASH PAPULAR [None]
